FAERS Safety Report 14246651 (Version 1)
Quarter: 2017Q4

REPORT INFORMATION
  Report Type: Spontaneous
  Country: PT (occurrence: PT)
  Receive Date: 20171204
  Receipt Date: 20171204
  Transmission Date: 20180321
  Serious: Yes (Death, Other)
  Sender: FDA-Public Use
  Company Number: PT-FRESENIUS KABI-FK201710435

PATIENT
  Age: 68 Year
  Sex: Female

DRUGS (2)
  1. VANCOMYCIN (MANUFACTURER UNKNOWN) [Suspect]
     Active Substance: VANCOMYCIN
     Indication: STAPHYLOCOCCAL BACTERAEMIA
     Route: 065
  2. CEFTAZIDIME (MANUFACTURER UNKNOWN) [Suspect]
     Active Substance: CEFTAZIDIME
     Indication: STAPHYLOCOCCAL BACTERAEMIA
     Route: 065

REACTIONS (2)
  - Multiple organ dysfunction syndrome [Fatal]
  - Acute kidney injury [Not Recovered/Not Resolved]
